FAERS Safety Report 7221427-9 (Version None)
Quarter: 2011Q1

REPORT INFORMATION
  Report Type: 
  Country: None (occurrence: None)
  Receive Date: 20110112
  Receipt Date: 20110110
  Transmission Date: 20110831
  Serious: Yes (Hospitalization)
  Sender: FDA-Public Use
  Company Number: CA-ABBOTT-11P-028-0695143-00

PATIENT
  Sex: Female
  Weight: 57.658 kg

DRUGS (4)
  1. HUMIRA [Suspect]
     Indication: RHEUMATOID ARTHRITIS
     Route: 058
     Dates: start: 20101203
  2. VIT D [Concomitant]
     Indication: VITAMIN SUPPLEMENTATION
     Dates: start: 20080101
  3. PREDNISONE [Concomitant]
     Indication: ARTHRITIS
     Route: 048
     Dates: start: 20101001
  4. CRESTOR [Concomitant]
     Indication: BLOOD CHOLESTEROL
     Route: 048
     Dates: start: 20080101

REACTIONS (11)
  - OEDEMA PERIPHERAL [None]
  - PAIN IN EXTREMITY [None]
  - PYREXIA [None]
  - MUSCULAR WEAKNESS [None]
  - GAIT DISTURBANCE [None]
  - VOMITING [None]
  - LOCALISED OEDEMA [None]
  - NAUSEA [None]
  - BLOOD PRESSURE DECREASED [None]
  - DIARRHOEA [None]
  - NECK PAIN [None]
